FAERS Safety Report 24418034 (Version 4)
Quarter: 2025Q1

REPORT INFORMATION
  Report Type: Spontaneous
  Country: US (occurrence: US)
  Receive Date: 20241009
  Receipt Date: 20250324
  Transmission Date: 20250409
  Serious: No
  Sender: BRISTOL-MYERS SQUIBB COMPANY
  Company Number: US-BRISTOL-MYERS SQUIBB COMPANY-2024-159333

PATIENT
  Age: 40 Year
  Sex: Male
  Weight: 163.75 kg

DRUGS (3)
  1. POMALYST [Suspect]
     Active Substance: POMALIDOMIDE
     Indication: Plasma cell myeloma
     Route: 048
     Dates: start: 202408
  2. DEXAMETHASONE [Suspect]
     Active Substance: DEXAMETHASONE
     Indication: Product used for unknown indication
  3. CYCLOPHOSPHAMIDE [Suspect]
     Active Substance: CYCLOPHOSPHAMIDE
     Indication: Product used for unknown indication

REACTIONS (11)
  - Fatigue [Not Recovered/Not Resolved]
  - Arthralgia [Unknown]
  - Thirst [Unknown]
  - Rash [Unknown]
  - Respiratory tract congestion [Unknown]
  - Pyrexia [Unknown]
  - Cough [Unknown]
  - Chills [Unknown]
  - Headache [Unknown]
  - Pain [Unknown]
  - Weight increased [Unknown]
